FAERS Safety Report 21946221 (Version 1)
Quarter: 2023Q1

REPORT INFORMATION
  Report Type: Spontaneous
  Country: US (occurrence: US)
  Receive Date: 20230202
  Receipt Date: 20230202
  Transmission Date: 20230418
  Serious: No
  Sender: FDA-Public Use
  Company Number: US-PFIZER INC-PV202300020881

PATIENT
  Age: 19 Year
  Sex: Female
  Weight: 20 kg

DRUGS (1)
  1. XELJANZ XR [Suspect]
     Active Substance: TOFACITINIB CITRATE
     Indication: Colitis
     Dosage: 22 MG EVERY 1 DAYS
     Route: 048
     Dates: start: 20221214

REACTIONS (3)
  - Malabsorption [Unknown]
  - Product residue present [Unknown]
  - Off label use [Unknown]

NARRATIVE: CASE EVENT DATE: 20221214
